FAERS Safety Report 10589670 (Version 2)
Quarter: 2014Q4

REPORT INFORMATION
  Report Type: Report from Study
  Country: GR (occurrence: GR)
  Receive Date: 20141118
  Receipt Date: 20141118
  Transmission Date: 20150529
  Serious: Yes (Life-Threatening)
  Sender: FDA-Public Use
  Company Number: PHHY2014GR013724

PATIENT
  Age: 61 Year
  Sex: Female
  Weight: 49 kg

DRUGS (8)
  1. AROMASIN [Concomitant]
     Active Substance: EXEMESTANE
     Indication: PRODUCT USED FOR UNKNOWN INDICATION
     Dosage: 1 DF, ONE IN A DAY
     Route: 065
  2. AFINITOR [Suspect]
     Active Substance: EVEROLIMUS
     Dosage: 5 MG
     Route: 048
  3. INEGY [Concomitant]
     Active Substance: EZETIMIBE\SIMVASTATIN
     Indication: PRODUCT USED FOR UNKNOWN INDICATION
     Dosage: 1 DF, QD
     Route: 065
  4. ZOMETA [Concomitant]
     Active Substance: ZOLEDRONIC ACID
     Indication: PRODUCT USED FOR UNKNOWN INDICATION
     Dosage: 1 DF, EVERY 20 DAYS
     Route: 065
  5. AFINITOR [Suspect]
     Active Substance: EVEROLIMUS
     Indication: BREAST CANCER
     Dosage: 10 MG, QD
     Route: 048
     Dates: start: 20130625
  6. AFINITOR [Suspect]
     Active Substance: EVEROLIMUS
     Dosage: 10 MG, QD
     Route: 048
  7. AFINITOR [Suspect]
     Active Substance: EVEROLIMUS
     Dosage: 1 DF, QD
     Route: 048
  8. LOPRESSOR [Concomitant]
     Active Substance: METOPROLOL TARTRATE
     Indication: PRODUCT USED FOR UNKNOWN INDICATION
     Dosage: 1/4 TWO TIMES
     Route: 065

REACTIONS (22)
  - Feeling abnormal [Unknown]
  - Alopecia [Not Recovered/Not Resolved]
  - Gingival pain [Unknown]
  - Haematocrit decreased [Unknown]
  - Glossodynia [Unknown]
  - Tongue ulceration [Unknown]
  - Stomatitis [Unknown]
  - Chest pain [Not Recovered/Not Resolved]
  - White blood cell count decreased [Unknown]
  - Eyelid ptosis [Not Recovered/Not Resolved]
  - Weight decreased [Not Recovered/Not Resolved]
  - Tumour marker increased [Unknown]
  - Oropharyngeal pain [Unknown]
  - Onychoclasis [Not Recovered/Not Resolved]
  - Oral discomfort [Unknown]
  - Drug administration error [Not Recovered/Not Resolved]
  - Oral pain [Unknown]
  - Pyrexia [Not Recovered/Not Resolved]
  - Fatigue [Not Recovered/Not Resolved]
  - Chills [Not Recovered/Not Resolved]
  - Periorbital oedema [Not Recovered/Not Resolved]
  - Aphthous stomatitis [Unknown]

NARRATIVE: CASE EVENT DATE: 20130705
